FAERS Safety Report 12755471 (Version 1)
Quarter: 2016Q3

REPORT INFORMATION
  Report Type: Spontaneous
  Country: US (occurrence: US)
  Receive Date: 20160916
  Receipt Date: 20160916
  Transmission Date: 20161109
  Serious: Yes (Hospitalization, Other)
  Sender: FDA-Public Use
  Company Number: US-AMNEAL PHARMACEUTICALS-2016AMN00538

PATIENT
  Age: 77 Year
  Sex: Female

DRUGS (17)
  1. ULTRACET [Concomitant]
     Active Substance: ACETAMINOPHEN\TRAMADOL HYDROCHLORIDE
  2. LECITHIN [Concomitant]
     Active Substance: LECITHIN
     Dosage: UNK
     Dates: start: 20020107
  3. LISINOPRIL. [Concomitant]
     Active Substance: LISINOPRIL
     Dosage: UNK
     Dates: start: 20070113
  4. NEXIUM [Concomitant]
     Active Substance: ESOMEPRAZOLE MAGNESIUM
  5. CALCIUM WITH VITMAIN D [Concomitant]
     Dosage: UNK
     Dates: start: 20060307
  6. ATENOLOL. [Concomitant]
     Active Substance: ATENOLOL
     Dosage: UNK
     Dates: start: 20020802
  7. VITACAL [Concomitant]
     Dosage: UNK
     Dates: start: 20060317
  8. CYCLOBENZAPRINE [Concomitant]
     Active Substance: CYCLOBENZAPRINE
     Dosage: UNK
     Dates: start: 20060627
  9. PRAZOSIN [Suspect]
     Active Substance: PRAZOSIN
     Dosage: UNK
  10. MULTIVITAMINS [Concomitant]
     Active Substance: VITAMINS
     Dosage: UNK
     Dates: start: 20010813
  11. LYSINE [Concomitant]
     Active Substance: LYSINE
     Dosage: UNK
     Dates: start: 20020107
  12. EZETIMBE [Concomitant]
     Active Substance: EZETIMIBE
     Dosage: UNK
     Dates: start: 20050310
  13. ROSUVASTATIN. [Concomitant]
     Active Substance: ROSUVASTATIN
     Dosage: UNK
     Dates: start: 20060104
  14. NAPROXEN. [Suspect]
     Active Substance: NAPROXEN
     Indication: OSTEOARTHRITIS
     Dosage: UNK
     Dates: start: 20061220, end: 20070319
  15. GLUCOTROL [Concomitant]
     Active Substance: GLIPIZIDE
     Dosage: UNK
     Dates: start: 20070627
  16. DIPHENHYDRAMINE. [Concomitant]
     Active Substance: DIPHENHYDRAMINE
     Dosage: UNK
     Dates: start: 20020107
  17. LANSOPRAZOLE. [Concomitant]
     Active Substance: LANSOPRAZOLE
     Dosage: UNK
     Dates: start: 20070113, end: 20070117

REACTIONS (1)
  - Heart rate irregular [Unknown]

NARRATIVE: CASE EVENT DATE: 20070113
